FAERS Safety Report 7039133-2 (Version None)
Quarter: 2010Q4

REPORT INFORMATION
  Report Type: 
  Country: None (occurrence: None)
  Receive Date: 20101007
  Receipt Date: 20101007
  Transmission Date: 20110411
  Serious: Yes (Other)
  Sender: FDA-Public Use
  Company Number: None

PATIENT
  Age: 15 Year
  Sex: Female
  Weight: 63.5036 kg

DRUGS (1)
  1. ACCUTANE [Suspect]
     Indication: ACNE
     Dosage: 2 PER DAY DAILY PO
     Route: 048
     Dates: start: 19950101, end: 19970101

REACTIONS (1)
  - RESIDUAL OVARY SYNDROME [None]
